FAERS Safety Report 7995603-1 (Version None)
Quarter: 2011Q4

REPORT INFORMATION
  Report Type: 
  Country: None (occurrence: None)
  Receive Date: 20111217
  Receipt Date: 20111217
  Transmission Date: 20120403
  Serious: Yes (Hospitalization)
  Sender: FDA-Public Use
  Company Number: None

PATIENT
  Age: 60 Year
  Sex: Female
  Weight: 55.7924 kg

DRUGS (2)
  1. ALENDRONATE SODIUM [Suspect]
     Dosage: 70 MG 1/WEEK
  2. FOSAMAX [Suspect]
     Indication: OSTEOPENIA
     Dosage: 70 MG 1/ WEEK
     Dates: start: 20020301, end: 20111001

REACTIONS (3)
  - PATHOLOGICAL FRACTURE [None]
  - PAIN [None]
  - FEMUR FRACTURE [None]
